FAERS Safety Report 17898288 (Version 1)
Quarter: 2020Q2

REPORT INFORMATION
  Report Type: Spontaneous
  Country: US (occurrence: US)
  Receive Date: 20200615
  Receipt Date: 20200615
  Transmission Date: 20200714
  Serious: No
  Sender: FDA-Public Use
  Company Number: US-PERRIGO-20US006711

PATIENT
  Age: 20 Year
  Sex: Male
  Weight: 81.63 kg

DRUGS (7)
  1. ALBUTEROL SULFATE. [Suspect]
     Active Substance: ALBUTEROL SULFATE
     Indication: ASTHMA
     Dosage: UNKNOWN,  PRN
     Route: 055
     Dates: start: 20200428, end: 20200429
  2. ALBUTEROL SULFATE. [Suspect]
     Active Substance: ALBUTEROL SULFATE
     Dosage: UNKNOWN,  PRN
     Route: 055
     Dates: start: 20200506
  3. SINGULAIR [Concomitant]
     Active Substance: MONTELUKAST SODIUM
     Indication: ASTHMA
     Dosage: UNK
     Route: 065
  4. EPIPEN [Concomitant]
     Active Substance: EPINEPHRINE
     Indication: HYPERSENSITIVITY
     Dosage: UNK, PRN
     Route: 065
  5. ALLERGEN EXTRACTS [Concomitant]
     Active Substance: ALLERGENIC EXTRACTS
     Indication: ALLERGY TO ANIMAL
  6. ZYRTEC [Concomitant]
     Active Substance: CETIRIZINE HYDROCHLORIDE
     Indication: HYPERSENSITIVITY
     Dosage: UNK
     Route: 065
  7. ALLERGEN EXTRACTS [Concomitant]
     Active Substance: ALLERGENIC EXTRACTS
     Indication: SEASONAL ALLERGY
     Dosage: UNK
     Route: 030
     Dates: start: 2017

REACTIONS (4)
  - Device delivery system issue [Recovered/Resolved]
  - Underdose [Unknown]
  - Wrong technique in device usage process [Recovered/Resolved]
  - Drug ineffective [Unknown]

NARRATIVE: CASE EVENT DATE: 20200428
